FAERS Safety Report 6930218-5 (Version None)
Quarter: 2010Q3

REPORT INFORMATION
  Report Type: 
  Country: None (occurrence: None)
  Receive Date: 20100817
  Receipt Date: 20100817
  Transmission Date: 20110219
  Serious: Yes (Disabling)
  Sender: FDA-Public Use
  Company Number: None

PATIENT

DRUGS (1)
  1. LEVAQUIN [Suspect]
     Indication: URINARY TRACT INFECTION
     Dosage: 500 MG TABLET 1 TABLET A DAY
     Dates: start: 20091103, end: 20091110

REACTIONS (2)
  - ARTHRALGIA [None]
  - TENDON PAIN [None]
